FAERS Safety Report 21010384 (Version 1)
Quarter: 2022Q2

REPORT INFORMATION
  Report Type: Spontaneous
  Country: US (occurrence: None)
  Receive Date: 20220625
  Receipt Date: 20220625
  Transmission Date: 20220721
  Serious: Yes (Death, Hospitalization)
  Sender: FDA-Public Use
  Company Number: None

PATIENT
  Sex: Male
  Weight: 84.2 kg

DRUGS (1)
  1. GEMCITABINE HYDROCHLORIDE [Suspect]
     Active Substance: GEMCITABINE HYDROCHLORIDE
     Dates: start: 20220425, end: 20220509

REACTIONS (10)
  - Transitional cell carcinoma [None]
  - Abdominal pain [None]
  - Jaundice [None]
  - Hepatic enzyme increased [None]
  - Blood bilirubin increased [None]
  - White blood cell count increased [None]
  - Bone cancer metastatic [None]
  - Lung cancer metastatic [None]
  - Metastases to liver [None]
  - Metastases to soft tissue [None]

NARRATIVE: CASE EVENT DATE: 20220530
